FAERS Safety Report 4684056-7 (Version None)
Quarter: 2005Q2

REPORT INFORMATION
  Report Type: 
  Country: None (occurrence: None)
  Receive Date: 20050602
  Receipt Date: 20050120
  Transmission Date: 20051028
  Serious: No
  Sender: FDA-Public Use
  Company Number: USA050188897

PATIENT
  Age: 78 Year
  Sex: Female

DRUGS (5)
  1. CYMBALTA [Suspect]
     Indication: DEPRESSION
     Dosage: 60 MG DAY
     Dates: start: 20041208
  2. EFFEXOR [Concomitant]
  3. LITHIUM [Concomitant]
  4. REMERON (MIRTAZAPINE ORIFARM) [Concomitant]
  5. ATIVAN [Concomitant]

REACTIONS (1)
  - BRUXISM [None]
